FAERS Safety Report 15425741 (Version 1)
Quarter: 2018Q3

REPORT INFORMATION
  Report Type: Spontaneous
  Country: RU (occurrence: RU)
  Receive Date: 20180925
  Receipt Date: 20180925
  Transmission Date: 20181010
  Serious: Yes (Other)
  Sender: FDA-Public Use
  Company Number: RU-ASCEND THERAPEUTICS-2055327

PATIENT
  Age: 52 Year
  Sex: Female

DRUGS (2)
  1. ESTROGEL [Suspect]
     Active Substance: ESTRADIOL
     Indication: POSTMENOPAUSE
     Route: 062
     Dates: start: 20180505, end: 20180620
  2. UTROGESTAN [Suspect]
     Active Substance: PROGESTERONE
     Route: 067
     Dates: start: 20180505, end: 20180620

REACTIONS (1)
  - Peripheral venous disease [Recovered/Resolved]

NARRATIVE: CASE EVENT DATE: 20180610
